FAERS Safety Report 24054279 (Version 3)
Quarter: 2024Q3

REPORT INFORMATION
  Report Type: Spontaneous
  Country: US (occurrence: US)
  Receive Date: 20240705
  Receipt Date: 20240827
  Transmission Date: 20241016
  Serious: No
  Sender: ROCHE
  Company Number: US-ROCHE-10000008090

PATIENT
  Age: 74 Year
  Sex: Male

DRUGS (9)
  1. RITUXIMAB [Suspect]
     Active Substance: RITUXIMAB
     Indication: Diffuse large B-cell lymphoma
     Route: 031
  2. METHOTREXATE [Concomitant]
     Active Substance: METHOTREXATE
  3. DEXAMETHASONE [Concomitant]
     Active Substance: DEXAMETHASONE
  4. LEVETIRACETAM [Concomitant]
     Active Substance: LEVETIRACETAM
  5. ETOPOSIDE PHOSPHATE [Concomitant]
     Active Substance: ETOPOSIDE PHOSPHATE
  6. PREDNISONE [Concomitant]
     Active Substance: PREDNISONE
  7. VINCRISTINE SULFATE [Concomitant]
     Active Substance: VINCRISTINE SULFATE
  8. CYCLOPHOSPHAMIDE [Concomitant]
     Active Substance: CYCLOPHOSPHAMIDE
  9. EPIRUBICIN [Concomitant]
     Active Substance: EPIRUBICIN

REACTIONS (1)
  - Disease progression [Unknown]
